FAERS Safety Report 17471389 (Version 1)
Quarter: 2020Q1

REPORT INFORMATION
  Report Type: Spontaneous
  Country: US (occurrence: US)
  Receive Date: 20200228
  Receipt Date: 20200228
  Transmission Date: 20200409
  Serious: Yes (Hospitalization, Other)
  Sender: FDA-Public Use
  Company Number: NVSC2020US054299

PATIENT
  Age: 60 Year
  Sex: Female

DRUGS (2)
  1. PHENYTOIN. [Suspect]
     Active Substance: PHENYTOIN
     Indication: STATUS EPILEPTICUS
     Dosage: UNK
     Route: 065
  2. LEVETIRACETAM. [Suspect]
     Active Substance: LEVETIRACETAM
     Indication: STATUS EPILEPTICUS
     Dosage: UNK
     Route: 065

REACTIONS (9)
  - Tachycardia [Recovered/Resolved]
  - Hypotension [Recovered/Resolved]
  - Pneumonia [Recovered/Resolved]
  - Tachypnoea [Recovered/Resolved]
  - Palpitations [Recovered/Resolved]
  - Abdominal tenderness [Recovered/Resolved]
  - Drug reaction with eosinophilia and systemic symptoms [Recovered/Resolved]
  - Rash [Recovered/Resolved]
  - Liver function test increased [Recovered/Resolved]
